FAERS Safety Report 16349844 (Version 1)
Quarter: 2019Q2

REPORT INFORMATION
  Report Type: Spontaneous
  Country: PL (occurrence: PL)
  Receive Date: 20190523
  Receipt Date: 20190523
  Transmission Date: 20190711
  Serious: Yes (Other)
  Sender: FDA-Public Use
  Company Number: PHHY2019PL116782

PATIENT
  Age: 64 Year
  Sex: Male

DRUGS (4)
  1. DEXAVEN [Suspect]
     Active Substance: DEXAMETHASONE
     Indication: NEOPLASM MALIGNANT
     Dosage: 8 MG, UNK
     Route: 042
  2. CISPLATIN. [Suspect]
     Active Substance: CISPLATIN
     Indication: NEOPLASM MALIGNANT
     Dosage: 30 MG/M2, UNK
     Route: 042
  3. ETOPOSIDE. [Suspect]
     Active Substance: ETOPOSIDE
     Indication: NEOPLASM MALIGNANT
     Dosage: 100 MG/M2, UNK
     Route: 042
  4. ONDANSETRON [Suspect]
     Active Substance: ONDANSETRON
     Indication: NEOPLASM MALIGNANT
     Dosage: 8 MG, UNK
     Route: 042

REACTIONS (1)
  - Neutropenia [Unknown]

NARRATIVE: CASE EVENT DATE: 20160823
